FAERS Safety Report 16440549 (Version 1)
Quarter: 2019Q2

REPORT INFORMATION
  Report Type: Spontaneous
  Country: US (occurrence: US)
  Receive Date: 20190508
  Receipt Date: 20190508
  Transmission Date: 20190711
  Serious: No
  Sender: FDA-Public Use
  Company Number: None

PATIENT
  Age: 62 Year
  Sex: Male

DRUGS (1)
  1. ENBREL [Suspect]
     Active Substance: ETANERCEPT
     Dates: start: 20181125

REACTIONS (6)
  - Pruritus [None]
  - Rheumatoid arthritis [None]
  - Condition aggravated [None]
  - Influenza like illness [None]
  - Fatigue [None]
  - Abdominal pain [None]

NARRATIVE: CASE EVENT DATE: 20190504
